FAERS Safety Report 13831999 (Version 1)
Quarter: 2017Q3

REPORT INFORMATION
  Report Type: Spontaneous
  Country: US (occurrence: US)
  Receive Date: 20170803
  Receipt Date: 20170803
  Transmission Date: 20171127
  Serious: No
  Sender: FDA-Public Use
  Company Number: US-ROCHE-693655

PATIENT
  Age: 63 Year
  Sex: Female
  Weight: 58.1 kg

DRUGS (7)
  1. SUPER B COMPLEX [Concomitant]
     Active Substance: CYANOCOBALAMIN\DEXPANTHENOL\NIACINAMIDE\PYRIDOXINE HYDROCHLORIDE\RIBOFLAVIN 5^-PHOSPHATE SODIUM\THIAMINE HYDROCHLORIDE\VITAMIN B COMPLEX
     Route: 065
  2. SYNTHROID [Concomitant]
     Active Substance: LEVOTHYROXINE SODIUM
     Route: 065
  3. CALCIUM/VITAMIN D [Concomitant]
     Active Substance: CALCIUM\VITAMIN D
     Route: 065
  4. LECITHIN [Concomitant]
     Active Substance: LECITHIN
     Route: 065
  5. COQ10 PLUS PRODUCT NOS [Concomitant]
     Active Substance: DIETARY SUPPLEMENT\HERBALS\HOMEOPATHICS\UBIDECARENONE
     Route: 065
  6. COQ10 PLUS PRODUCT NOS [Concomitant]
     Active Substance: DIETARY SUPPLEMENT\HERBALS\HOMEOPATHICS\UBIDECARENONE
     Dosage: DRUG REPORTED AS: COQ10
     Route: 065
  7. BONIVA [Suspect]
     Active Substance: IBANDRONATE SODIUM
     Indication: OSTEOPOROSIS
     Route: 048

REACTIONS (3)
  - Chapped lips [Not Recovered/Not Resolved]
  - Muscle twitching [Not Recovered/Not Resolved]
  - Tongue dry [Not Recovered/Not Resolved]
